FAERS Safety Report 6590380-3 (Version None)
Quarter: 2010Q1

REPORT INFORMATION
  Report Type: 
  Country: None (occurrence: None)
  Receive Date: 20100219
  Receipt Date: 20100205
  Transmission Date: 20100710
  Serious: Yes (Hospitalization)
  Sender: FDA-Public Use
  Company Number: DE-AMGEN-US379413

PATIENT
  Sex: Male
  Weight: 76 kg

DRUGS (16)
  1. ENBREL [Suspect]
     Indication: DRUG USE FOR UNKNOWN INDICATION
     Route: 058
     Dates: start: 20090507, end: 20091101
  2. METHOTREXATE [Suspect]
     Indication: POLYARTHRITIS
     Dosage: FROM UNKNOWN DATE 15MG PER WEEK, INCREASE UP TO 25MG IN MAY-2009, THEN UP TO 50MG; DISC. IN NOV-2009
     Route: 058
  3. METHOTREXATE [Suspect]
     Dates: start: 20090501
  4. METHOTREXATE [Suspect]
     Dates: end: 20091101
  5. FORADIL [Concomitant]
     Dosage: UNKNOWN DOSE 2 TIMES PER 1 DAY
  6. SPIRIVA [Concomitant]
     Dosage: UNKNOWN DOSE 1 TIME PER 1 DAY
  7. ACETYLSALICYLIC ACID [Concomitant]
  8. PYRIDOXINE HYDROCHLORIDE [Concomitant]
     Dates: start: 20090101
  9. CALCIUM [Concomitant]
     Dosage: UNKNOWN
  10. ERGOCALCIFEROL [Concomitant]
     Dosage: UNKNOWN
  11. TILIDINE [Concomitant]
     Indication: POLYARTHRITIS
     Dosage: 50MG AS NEEDED
  12. BROMAZANIL [Concomitant]
     Dosage: AS NEEDED
  13. FOLIC ACID [Concomitant]
     Dosage: ONE DOSE ONE TIME PER WEEK
     Dates: end: 20091101
  14. ISONIAZID [Concomitant]
     Dates: start: 20090101
  15. PREDNISONE [Concomitant]
     Indication: POLYARTHRITIS
  16. PANTOZOL [Concomitant]

REACTIONS (4)
  - BRONCHIAL CARCINOMA [None]
  - FACIAL PARESIS [None]
  - MALIGNANT PLEURAL EFFUSION [None]
  - RESPIRATORY FAILURE [None]
